FAERS Safety Report 8611545-2 (Version None)
Quarter: 2012Q3

REPORT INFORMATION
  Report Type: 
  Country: None (occurrence: None)
  Receive Date: 20120822
  Receipt Date: 20120813
  Transmission Date: 20120928
  Serious: Yes (Other)
  Sender: FDA-Public Use
  Company Number: PHEH2012US002588

PATIENT
  Sex: Female

DRUGS (2)
  1. GILENYA [Suspect]
     Dosage: 0.5 MG, QD
     Route: 048
     Dates: start: 20111220
  2. GILENYA [Suspect]
     Dosage: 0.5 MG, QW3
     Route: 048

REACTIONS (12)
  - NEUROPATHY PERIPHERAL [None]
  - DIZZINESS [None]
  - BACK PAIN [None]
  - CELLULITIS [None]
  - VISION BLURRED [None]
  - DYSSTASIA [None]
  - MUSCULOSKELETAL STIFFNESS [None]
  - NAUSEA [None]
  - INAPPROPRIATE SCHEDULE OF DRUG ADMINISTRATION [None]
  - RESTLESS LEGS SYNDROME [None]
  - SOMNOLENCE [None]
  - HYPOTENSION [None]
